FAERS Safety Report 10527137 (Version 1)
Quarter: 2014Q4

REPORT INFORMATION
  Report Type: Spontaneous
  Country: US (occurrence: None)
  Receive Date: 20141017
  Receipt Date: 20141017
  Transmission Date: 20150528
  Serious: Yes (Hospitalization)
  Sender: FDA-Public Use
  Company Number: None

PATIENT
  Age: 52 Year
  Sex: Male
  Weight: 102 kg

DRUGS (8)
  1. ONCASPAR [Suspect]
     Active Substance: PEGASPARGASE
     Dosage: 3750 IU
     Dates: end: 20140929
  2. CYCLOPHOSPHAMIDE. [Suspect]
     Active Substance: CYCLOPHOSPHAMIDE
     Dates: end: 20141009
  3. MERCAPTOPURINE. [Suspect]
     Active Substance: MERCAPTOPURINE
     Dates: end: 20141012
  4. VINCRISTINE SULFATE. [Suspect]
     Active Substance: VINCRISTINE SULFATE
     Dates: end: 20141002
  5. CYTARABINE. [Suspect]
     Active Substance: CYTARABINE
     Dates: end: 20141012
  6. METHOTREXATE [Suspect]
     Active Substance: METHOTREXATE
     Dates: end: 20140924
  7. DAUNORUBICIN [Suspect]
     Active Substance: DAUNORUBICIN
     Dates: end: 20141002
  8. DEXAMETHASONE. [Suspect]
     Active Substance: DEXAMETHASONE
     Dates: end: 20141001

REACTIONS (5)
  - Cholestatic liver injury [None]
  - Dizziness [None]
  - Drug-induced liver injury [None]
  - Blood bilirubin increased [None]
  - Cholelithiasis [None]

NARRATIVE: CASE EVENT DATE: 20141013
